FAERS Safety Report 19794957 (Version 1)
Quarter: 2021Q3

REPORT INFORMATION
  Report Type: Report from Study
  Country: US (occurrence: US)
  Receive Date: 20210907
  Receipt Date: 20210907
  Transmission Date: 20211014
  Serious: Yes (Hospitalization)
  Sender: FDA-Public Use
  Company Number: US-JNJFOC-20210859230

PATIENT
  Sex: Female

DRUGS (11)
  1. CARVEDILOL. [Concomitant]
     Active Substance: CARVEDILOL
  2. WARFARIN [Concomitant]
     Active Substance: WARFARIN
  3. AMLODIPINE [Concomitant]
     Active Substance: AMLODIPINE BESYLATE
  4. BUMETANIDE. [Concomitant]
     Active Substance: BUMETANIDE
  5. POTASSIUM CHLORIDE. [Concomitant]
     Active Substance: POTASSIUM CHLORIDE
  6. ATORVASTATIN [Concomitant]
     Active Substance: ATORVASTATIN
  7. PREDNISONE. [Concomitant]
     Active Substance: PREDNISONE
  8. MACITENTAN [Suspect]
     Active Substance: MACITENTAN
     Indication: PULMONARY ARTERIAL HYPERTENSION
     Route: 048
     Dates: start: 20151223
  9. ACARBOSE. [Concomitant]
     Active Substance: ACARBOSE
  10. FERROUS GLUCONATE [Concomitant]
     Active Substance: FERROUS GLUCONATE
  11. GLIMEPIRIDE. [Concomitant]
     Active Substance: GLIMEPIRIDE

REACTIONS (2)
  - Product dose omission issue [Unknown]
  - Hospitalisation [Unknown]
